FAERS Safety Report 9376097 (Version 2)
Quarter: 2014Q1

REPORT INFORMATION
  Report Type: Spontaneous
  Country: IT (occurrence: IT)
  Receive Date: 20130630
  Receipt Date: 20140312
  Transmission Date: 20141002
  Serious: Yes (Death, Hospitalization)
  Sender: FDA-Public Use
  Company Number: IT-SANOFI-AVENTIS-2013SA063212

PATIENT
  Age: 91 Year
  Sex: Female

DRUGS (4)
  1. CLEXANE [Suspect]
     Indication: PROPHYLAXIS
     Dosage: FORM- VIAL
     Route: 058
  2. CLEXANE [Suspect]
     Indication: DEEP VEIN THROMBOSIS
     Dosage: FORM- VIAL
     Route: 058
  3. CLEXANE [Suspect]
     Indication: PROPHYLAXIS
     Dosage: FORM- VIAL
     Route: 058
  4. CLEXANE [Suspect]
     Indication: DEEP VEIN THROMBOSIS
     Dosage: FORM- VIAL
     Route: 058

REACTIONS (5)
  - Death [Fatal]
  - Renal failure [Unknown]
  - Haemorrhage [Unknown]
  - Anaemia [Unknown]
  - Overdose [Unknown]
